FAERS Safety Report 10967073 (Version 2)
Quarter: 2015Q2

REPORT INFORMATION
  Report Type: Spontaneous
  Country: ID (occurrence: ID)
  Receive Date: 20150330
  Receipt Date: 20150401
  Transmission Date: 20150821
  Serious: Yes (Other)
  Sender: FDA-Public Use
  Company Number: ID-ASTELLAS-2015US007499

PATIENT
  Age: 41 Year
  Sex: Female

DRUGS (2)
  1. MYCAMINE [Suspect]
     Active Substance: MICAFUNGIN SODIUM
     Indication: CANDIDA INFECTION
     Route: 042
  2. MYCOSTATIN [Concomitant]
     Active Substance: NYSTATIN
     Indication: PRODUCT USED FOR UNKNOWN INDICATION
     Route: 065

REACTIONS (3)
  - Cyanosis [Unknown]
  - Vomiting [Unknown]
  - Chills [Recovered/Resolved]

NARRATIVE: CASE EVENT DATE: 20150304
